FAERS Safety Report 7501242-9 (Version None)
Quarter: 2011Q2

REPORT INFORMATION
  Report Type: 
  Country: None (occurrence: None)
  Receive Date: 20110524
  Receipt Date: 20110512
  Transmission Date: 20111010
  Serious: Yes (Other)
  Sender: FDA-Public Use
  Company Number: JP-UCBSA-032764

PATIENT
  Age: 36 Year
  Sex: Male

DRUGS (1)
  1. XYZAL [Suspect]
     Indication: DERMATITIS
     Route: 048
     Dates: start: 20110101, end: 20110501

REACTIONS (1)
  - VIITH NERVE PARALYSIS [None]
